FAERS Safety Report 13157346 (Version 3)
Quarter: 2017Q1

REPORT INFORMATION
  Report Type: Report from Study
  Country: US (occurrence: US)
  Receive Date: 20170127
  Receipt Date: 20170208
  Transmission Date: 20170428
  Serious: No
  Sender: FDA-Public Use
  Company Number: US-AMGEN-USASL2017011693

PATIENT
  Age: 59 Year
  Sex: Male

DRUGS (3)
  1. ENBREL [Suspect]
     Active Substance: ETANERCEPT
     Indication: PSORIATIC ARTHROPATHY
     Dosage: UNK UNK, QWK
     Route: 065
     Dates: start: 201612
  2. TRAMADOL. [Concomitant]
     Active Substance: TRAMADOL
     Dosage: 50 MG, BID
  3. ENBREL [Suspect]
     Active Substance: ETANERCEPT
     Indication: NEUROPATHY PERIPHERAL
     Dosage: UNK UNK, QWK
     Route: 065

REACTIONS (8)
  - Drug effect incomplete [Unknown]
  - Muscle spasms [Recovered/Resolved]
  - Fatigue [Recovering/Resolving]
  - Musculoskeletal discomfort [Unknown]
  - Dizziness [Unknown]
  - Dyspnoea [Unknown]
  - Off label use [Unknown]
  - Pharyngeal oedema [Unknown]

NARRATIVE: CASE EVENT DATE: 201612
